FAERS Safety Report 10249043 (Version 1)
Quarter: 2014Q2

REPORT INFORMATION
  Report Type: Spontaneous
  Country: DE (occurrence: None)
  Receive Date: 20140618
  Receipt Date: 20140618
  Transmission Date: 20141212
  Serious: Yes (Other)
  Sender: FDA-Public Use
  Company Number: SYM-2014-21800

PATIENT
  Age: 30 Year
  Sex: Male

DRUGS (1)
  1. ELONTRIL [Suspect]
     Indication: PRODUCT USED FOR UNKNOWN INDICATION
     Route: 048
     Dates: start: 20121128, end: 20121201

REACTIONS (8)
  - Delusion [None]
  - Tachyphrenia [None]
  - Restlessness [None]
  - Hallucination [None]
  - Logorrhoea [None]
  - Fear [None]
  - Disturbance in attention [None]
  - Abnormal dreams [None]
